FAERS Safety Report 6678298-9 (Version None)
Quarter: 2010Q2

REPORT INFORMATION
  Report Type: 
  Country: None (occurrence: None)
  Receive Date: 20100412
  Receipt Date: 20100412
  Transmission Date: 20101027
  Serious: Yes (Hospitalization)
  Sender: FDA-Public Use
  Company Number: None

PATIENT
  Sex: Male
  Weight: 68.9467 kg

DRUGS (15)
  1. NIASPAN [Suspect]
     Indication: BLOOD CHOLESTEROL
     Dosage: 1500 MG 1 PO
     Route: 048
     Dates: start: 20080708, end: 20100330
  2. EZETIMIBE [Suspect]
     Dosage: 10 MG 1 PO
     Route: 048
     Dates: start: 20080708, end: 20100330
  3. ASPIRIN [Concomitant]
  4. BACITRACIN [Concomitant]
  5. DOCUSATE NA [Concomitant]
  6. GABAPENTIN [Concomitant]
  7. METOPROLOL TARTRATE [Concomitant]
  8. OMEPRAZOLE [Concomitant]
  9. SIMVASTATIN [Concomitant]
  10. TAMSULOSIN HCL [Concomitant]
  11. BUPROPION HCL [Concomitant]
  12. WARFARIN NA [Concomitant]
  13. CITALOPRAM HYDROBROMIDE [Concomitant]
  14. LISINOPROIL [Concomitant]
  15. LORATADINE [Concomitant]

REACTIONS (1)
  - SURGERY [None]
